FAERS Safety Report 13338609 (Version 6)
Quarter: 2017Q2

REPORT INFORMATION
  Report Type: Spontaneous
  Country: US (occurrence: US)
  Receive Date: 20170315
  Receipt Date: 20170419
  Transmission Date: 20170830
  Serious: Yes (Hospitalization)
  Sender: FDA-Public Use
  Company Number: US-CELGENEUS-USA-2017034081

PATIENT
  Sex: Male
  Weight: 91.71 kg

DRUGS (1)
  1. REVLIMID [Suspect]
     Active Substance: LENALIDOMIDE
     Indication: MANTLE CELL LYMPHOMA
     Dosage: 15 MILLIGRAM
     Route: 048
     Dates: start: 20161018

REACTIONS (6)
  - Pneumonia [Unknown]
  - Mantle cell lymphoma [Unknown]
  - Cardiac disorder [Unknown]
  - Weight decreased [Unknown]
  - Decreased appetite [Unknown]
  - Neutropenia [Unknown]
